FAERS Safety Report 5745664-5 (Version None)
Quarter: 2008Q2

REPORT INFORMATION
  Report Type: 
  Country: None (occurrence: None)
  Receive Date: 20080521
  Receipt Date: 20080516
  Transmission Date: 20081010
  Serious: Yes (Life-Threatening, Hospitalization)
  Sender: FDA-Public Use
  Company Number: FR-ABBOTT-08P-056-0452134-00

PATIENT
  Sex: Male
  Weight: 65 kg

DRUGS (11)
  1. KALETRA [Suspect]
     Indication: HIV INFECTION
     Route: 048
     Dates: start: 20070720, end: 20080307
  2. KALETRA [Suspect]
     Dates: start: 20080317
  3. VINORELBINE [Interacting]
     Indication: KAPOSI'S SARCOMA
     Route: 042
     Dates: start: 20080218, end: 20080225
  4. MICONAZOLE [Interacting]
     Indication: ORAL DISORDER
     Route: 002
     Dates: start: 20080220, end: 20080307
  5. ESCITALOPRAM [Concomitant]
     Indication: DEPRESSION
     Dosage: 20 MG X 2
     Route: 048
     Dates: start: 20070501, end: 20080307
  6. ESCITALOPRAM [Concomitant]
     Route: 048
     Dates: start: 20080317
  7. EMTRICITABINE, TENOFOVIR, DISOPROXIL [Concomitant]
     Indication: HIV INFECTION
     Dosage: 200 MG/245 MG
     Route: 048
     Dates: start: 20070720, end: 20080307
  8. EMTRICITABINE, TENOFOVIR, DISOPROXIL [Concomitant]
     Dates: start: 20080317
  9. DOXORUBICIN HYDROCHLORIDE [Concomitant]
     Indication: KAPOSI'S SARCOMA
     Dates: start: 20070727, end: 20071228
  10. OXAZEPAM [Concomitant]
     Indication: DRUG USE FOR UNKNOWN INDICATION
     Dosage: 50 MG X 3
  11. OXAZEPAM [Concomitant]
     Dates: start: 20080317

REACTIONS (14)
  - APLASIA [None]
  - CHOLESTASIS [None]
  - DIARRHOEA [None]
  - DRUG INTERACTION [None]
  - FEBRILE BONE MARROW APLASIA [None]
  - GINGIVITIS [None]
  - HEPATIC LESION [None]
  - LIVER FUNCTION TEST ABNORMAL [None]
  - MOUTH ULCERATION [None]
  - MUCOSAL INFLAMMATION [None]
  - ORAL FUNGAL INFECTION [None]
  - PANCYTOPENIA [None]
  - SKIN LESION [None]
  - WEIGHT DECREASED [None]
